FAERS Safety Report 7517185-0 (Version None)
Quarter: 2011Q2

REPORT INFORMATION
  Report Type: 
  Country: None (occurrence: None)
  Receive Date: 20110601
  Receipt Date: 20110518
  Transmission Date: 20111010
  Serious: Yes (Hospitalization)
  Sender: FDA-Public Use
  Company Number: US-CELGENEUS-CA046-11-0123

PATIENT
  Sex: Female
  Weight: 68 kg

DRUGS (11)
  1. EMEND [Concomitant]
     Indication: NAUSEA
     Route: 048
     Dates: start: 20110121
  2. GEMCITABINE [Suspect]
     Dosage: 1000 MILLIGRAM/SQ. METER
     Dates: start: 20110114, end: 20110303
  3. SULAR [Concomitant]
     Indication: HYPERTENSION
     Route: 048
     Dates: start: 20101101
  4. ZOFRAN [Concomitant]
     Indication: VOMITING
     Route: 048
     Dates: start: 20101228
  5. REGLAN [Concomitant]
     Indication: VOMITING
     Route: 048
     Dates: start: 20101228
  6. DECADRON [Concomitant]
     Indication: PROPHYLAXIS
     Route: 051
     Dates: start: 20110114
  7. ABRAXANE [Suspect]
     Dosage: 125 MILLIGRAM/SQ. METER
     Dates: start: 20110114, end: 20110303
  8. ZOFRAN [Concomitant]
     Indication: NAUSEA
     Route: 051
     Dates: start: 20101228
  9. MULTI-VITAMINS [Concomitant]
     Indication: VITAMIN SUPPLEMENTATION
     Route: 051
     Dates: start: 20110111
  10. CREON [Concomitant]
     Indication: PANCREATIC INSUFFICIENCY
     Route: 048
     Dates: start: 20101130
  11. ATIVAN [Concomitant]
     Indication: NAUSEA
     Route: 051
     Dates: start: 20110117

REACTIONS (1)
  - HYPOKALAEMIA [None]
